FAERS Safety Report 8008523-3 (Version None)
Quarter: 2011Q4

REPORT INFORMATION
  Report Type: 
  Country: None (occurrence: None)
  Receive Date: 20111227
  Receipt Date: 20111219
  Transmission Date: 20120403
  Serious: Yes (Other)
  Sender: FDA-Public Use
  Company Number: CA-ROCHE-1025354

PATIENT
  Sex: Female

DRUGS (6)
  1. NASACORT [Concomitant]
  2. XOLAIR [Suspect]
     Indication: ASTHMA
     Dosage: VIAL
     Route: 058
     Dates: start: 20111216
  3. VENTOLIN [Concomitant]
  4. PULMICORT [Concomitant]
  5. SINGULAIR [Concomitant]
  6. SYMBICORT [Concomitant]

REACTIONS (2)
  - INJECTION SITE MASS [None]
  - ASTHMA [None]
